FAERS Safety Report 9390683 (Version 1)
Quarter: 2013Q3

REPORT INFORMATION
  Report Type: Spontaneous
  Country: US (occurrence: None)
  Receive Date: 20130705
  Receipt Date: 20130705
  Transmission Date: 20140515
  Serious: Yes (Death)
  Sender: FDA-Public Use
  Company Number: None

PATIENT
  Age: 38 Year
  Sex: Male
  Weight: 210 kg

DRUGS (1)
  1. PROPECIA MERCK [Suspect]
     Indication: ALOPECIA
     Dosage: 1 PILL MOUTH
     Route: 048
     Dates: start: 201011, end: 201202

REACTIONS (9)
  - Completed suicide [None]
  - Accident [None]
  - Libido decreased [None]
  - Mood altered [None]
  - Panic attack [None]
  - Depression [None]
  - Insomnia [None]
  - Alcohol use [None]
  - Mental disorder [None]
